FAERS Safety Report 6129611-2 (Version None)
Quarter: 2009Q1

REPORT INFORMATION
  Report Type: 
  Country: None (occurrence: None)
  Receive Date: 20090323
  Receipt Date: 20090323
  Transmission Date: 20090719
  Serious: Yes (Other)
  Sender: FDA-Public Use
  Company Number: None

PATIENT
  Age: 48 Year
  Sex: Female
  Weight: 100.6985 kg

DRUGS (2)
  1. LEVAQUIN [Suspect]
     Indication: BACTERIAL INFECTION
     Dosage: 1 TABLET 1 A DAY PO
     Route: 048
     Dates: start: 20080430, end: 20080501
  2. LEVAQUIN [Suspect]
     Indication: SINUSITIS
     Dosage: 1 TABLET 1 A DAY PO
     Route: 048
     Dates: start: 20080430, end: 20080501

REACTIONS (4)
  - ABASIA [None]
  - DYSSTASIA [None]
  - IMPAIRED WORK ABILITY [None]
  - TENDONITIS [None]
